FAERS Safety Report 8209122-0 (Version None)
Quarter: 2012Q1

REPORT INFORMATION
  Report Type: 
  Country: None (occurrence: None)
  Receive Date: 20120314
  Receipt Date: 20120223
  Transmission Date: 20120608
  Serious: Yes (Disabling, Other)
  Sender: FDA-Public Use
  Company Number: US-BAYER-2012-023644

PATIENT
  Age: 68 Year
  Sex: Female
  Weight: 90.703 kg

DRUGS (11)
  1. TOBRAMYCIN [Suspect]
     Indication: OEDEMA
     Route: 047
  2. SIMVASTATIN [Suspect]
     Indication: BLOOD CHOLESTEROL INCREASED
  3. SYSTANE [MACROGOL,PROPYLENE GLYCOL] [Suspect]
     Indication: OEDEMA
     Route: 047
  4. PRED FORTE [Suspect]
     Indication: OEDEMA
     Route: 047
  5. THIAZIDE DERIVATIVES [Concomitant]
     Indication: HYPERTENSION
  6. CELEBREX [Suspect]
     Indication: POLYARTHRITIS
     Dosage: 200 MG, QD
  7. NAPROXEN SODIUM [Suspect]
     Indication: POLYARTHRITIS
  8. ACETAZOLAMIDE [Suspect]
     Indication: OEDEMA
     Dosage: 125 MG, QD
  9. LIPITOR [Suspect]
     Indication: BLOOD CHOLESTEROL INCREASED
     Dosage: 20 MG, QD
     Route: 048
  10. KETOROLAC TROMETHAMINE [Suspect]
     Indication: OEDEMA
     Route: 047
  11. LEVOXYL [Concomitant]
     Indication: HORMONE REPLACEMENT THERAPY

REACTIONS (7)
  - CATARACT OPERATION [None]
  - VISION BLURRED [None]
  - EYE DISORDER [None]
  - EYE OEDEMA [None]
  - INTRAOCULAR PRESSURE INCREASED [None]
  - DRUG INEFFECTIVE [None]
  - VISUAL IMPAIRMENT [None]
